FAERS Safety Report 8257787-X (Version None)
Quarter: 2012Q2

REPORT INFORMATION
  Report Type: 
  Country: None (occurrence: None)
  Receive Date: 20120404
  Receipt Date: 20120326
  Transmission Date: 20120825
  Serious: No
  Sender: FDA-Public Use
  Company Number: US-BIOGENIDEC-2012BI010629

PATIENT
  Age: 69 Year
  Sex: Female

DRUGS (1)
  1. TYSABRI [Suspect]
     Indication: MULTIPLE SCLEROSIS
     Route: 042
     Dates: start: 20100630

REACTIONS (7)
  - FALL [None]
  - MUSCULOSKELETAL DISORDER [None]
  - NASOPHARYNGITIS [None]
  - DYSSTASIA [None]
  - JOINT INJURY [None]
  - GAIT DISTURBANCE [None]
  - RESPIRATORY DISORDER [None]
